FAERS Safety Report 5887501-4 (Version None)
Quarter: 2008Q3

REPORT INFORMATION
  Report Type: 
  Country: None (occurrence: None)
  Receive Date: 20080918
  Receipt Date: 20080911
  Transmission Date: 20090109
  Serious: Yes (Hospitalization)
  Sender: FDA-Public Use
  Company Number: FR-AVENTIS-200813276FR

PATIENT
  Age: 41 Year
  Sex: Male

DRUGS (2)
  1. BIRODOGYL [Suspect]
     Route: 048
     Dates: start: 20080809, end: 20080814
  2. DEPAKENE [Concomitant]

REACTIONS (2)
  - ACUTE GENERALISED EXANTHEMATOUS PUSTULOSIS [None]
  - TOXIC SKIN ERUPTION [None]
